FAERS Safety Report 11087469 (Version 2)
Quarter: 2015Q2

REPORT INFORMATION
  Report Type: Spontaneous
  Country: GB (occurrence: GB)
  Receive Date: 20150504
  Receipt Date: 20150507
  Transmission Date: 20150821
  Serious: Yes (Other)
  Sender: FDA-Public Use
  Company Number: GB-PFIZER INC-2015148875

PATIENT
  Age: 38 Year
  Sex: Female

DRUGS (2)
  1. METHADONE [Concomitant]
     Active Substance: METHADONE HYDROCHLORIDE
     Dosage: 75 ML, DAILY
  2. GABAPENTIN. [Suspect]
     Active Substance: GABAPENTIN
     Indication: PAIN
     Dosage: 900 MG, 3X/DAY (3 TIMES A DAY)

REACTIONS (7)
  - Extrapyramidal disorder [Unknown]
  - Speech disorder [Unknown]
  - Salivary hypersecretion [Unknown]
  - Overdose [Unknown]
  - Sedation [Unknown]
  - Cholinergic syndrome [Unknown]
  - Joint stiffness [Unknown]
